FAERS Safety Report 9914566 (Version 5)
Quarter: 2014Q2

REPORT INFORMATION
  Report Type: Spontaneous
  Country: TW (occurrence: TW)
  Receive Date: 20140220
  Receipt Date: 20140508
  Transmission Date: 20141212
  Serious: Yes (Death, Hospitalization, Other)
  Sender: FDA-Public Use
  Company Number: TW-AMGEN-TWNSP2014012017

PATIENT
  Age: 19 Year
  Sex: Male

DRUGS (1)
  1. ARANESP [Suspect]
     Indication: NEPHROGENIC ANAEMIA
     Dosage: 20 MUG X 5/MONTH
     Route: 058
     Dates: start: 20130724, end: 20140207

REACTIONS (5)
  - Death [Fatal]
  - Peritoneal hernia [Unknown]
  - Investigation [Unknown]
  - Oedema peripheral [Unknown]
  - Aplasia pure red cell [Unknown]
